FAERS Safety Report 7540904-4 (Version None)
Quarter: 2011Q2

REPORT INFORMATION
  Report Type: 
  Country: None (occurrence: None)
  Receive Date: 20110610
  Receipt Date: 20110607
  Transmission Date: 20111010
  Serious: Yes (Death)
  Sender: FDA-Public Use
  Company Number: TN-SANOFI-AVENTIS-2011SA036271

PATIENT
  Age: 83 Year
  Sex: Male

DRUGS (13)
  1. TRIMETAZIDINE HYDROCHLORIDE [Concomitant]
     Route: 048
     Dates: end: 20110125
  2. LASIX [Concomitant]
     Route: 048
     Dates: end: 20110125
  3. ATORVASTATIN [Concomitant]
     Route: 048
     Dates: end: 20110125
  4. ASPIRIN [Concomitant]
     Dates: end: 20101122
  5. NITROGLYCERIN [Concomitant]
     Route: 048
     Dates: end: 20110125
  6. PLAVIX [Suspect]
     Route: 048
     Dates: start: 20100202, end: 20110125
  7. ASPIRIN [Concomitant]
     Route: 048
     Dates: start: 20101123, end: 20110125
  8. CORVASAL [Concomitant]
     Route: 048
     Dates: end: 20110125
  9. OMEPRAZOLE [Concomitant]
     Route: 048
     Dates: end: 20110125
  10. PLAVIX [Suspect]
     Route: 048
     Dates: start: 20100202, end: 20110125
  11. AMLODIPINE [Concomitant]
     Route: 048
     Dates: end: 20110125
  12. HYPOTEN [Concomitant]
     Route: 048
     Dates: end: 20110125
  13. GLUCOPHAGE [Concomitant]
     Route: 048
     Dates: end: 20110125

REACTIONS (1)
  - PROSTATE CANCER METASTATIC [None]
